FAERS Safety Report 6706981-5 (Version None)
Quarter: 2010Q2

REPORT INFORMATION
  Report Type: 
  Country: None (occurrence: None)
  Receive Date: 20100503
  Receipt Date: 20100420
  Transmission Date: 20101027
  Serious: Yes (Hospitalization)
  Sender: FDA-Public Use
  Company Number: FR-ELI_LILLY_AND_COMPANY-FR201004005072

PATIENT
  Sex: Male

DRUGS (10)
  1. GEMZAR [Suspect]
     Indication: NON-HODGKIN'S LYMPHOMA
     Dosage: UNK, UNKNOWN
     Route: 042
     Dates: start: 20100127
  2. PAROXETINE HCL [Concomitant]
     Indication: DEPRESSION
     Dosage: UNK, UNKNOWN
     Route: 065
  3. RITUXIMAB [Concomitant]
     Indication: NON-HODGKIN'S LYMPHOMA
     Dosage: UNK, UNKNOWN
     Route: 065
  4. CYCLOPHOSPHAMIDE [Concomitant]
     Indication: NON-HODGKIN'S LYMPHOMA
     Dosage: UNK, UNKNOWN
     Route: 065
  5. DOXORUBICIN HCL [Concomitant]
     Indication: NON-HODGKIN'S LYMPHOMA
     Dosage: UNK, UNKNOWN
     Route: 065
  6. ONCOVIN [Concomitant]
     Indication: NON-HODGKIN'S LYMPHOMA
     Dosage: UNK, UNKNOWN
     Route: 065
  7. PREDNISONE [Concomitant]
     Indication: NON-HODGKIN'S LYMPHOMA
     Dosage: UNK, UNKNOWN
     Route: 065
  8. MABTHERA [Concomitant]
     Indication: NON-HODGKIN'S LYMPHOMA
     Dosage: UNK, UNKNOWN
     Route: 042
     Dates: start: 20100127
  9. MABTHERA [Concomitant]
     Dosage: UNK, UNKNOWN
     Route: 042
  10. ELOXATIN [Concomitant]
     Indication: NON-HODGKIN'S LYMPHOMA
     Dosage: UNK, UNKNOWN
     Route: 042
     Dates: start: 20100127

REACTIONS (4)
  - DRUG RASH WITH EOSINOPHILIA AND SYSTEMIC SYMPTOMS [None]
  - LUNG DISORDER [None]
  - MOUTH ULCERATION [None]
  - OFF LABEL USE [None]
